FAERS Safety Report 20514996 (Version 2)
Quarter: 2022Q1

REPORT INFORMATION
  Report Type: Spontaneous
  Country: US (occurrence: US)
  Receive Date: 20220224
  Receipt Date: 20220311
  Transmission Date: 20220424
  Serious: Yes (Other)
  Sender: FDA-Public Use
  Company Number: US-TEVA-2022-US-2009216

PATIENT
  Sex: Female

DRUGS (35)
  1. METHYLPREDNISOLONE [Suspect]
     Active Substance: METHYLPREDNISOLONE
     Indication: Pemphigus
     Dosage: 20 MILLIGRAM DAILY;
     Route: 065
  2. METHYLPREDNISOLONE [Suspect]
     Active Substance: METHYLPREDNISOLONE
     Indication: Anaphylaxis prophylaxis
     Dosage: 100 MG, RECEIVED DURING LOADING DOSE OF RITUXIMAB
     Route: 042
     Dates: start: 201606
  3. METHYLPREDNISOLONE [Suspect]
     Active Substance: METHYLPREDNISOLONE
     Dosage: 125 MG, RECEIVED DURING RELAPSE OF PEMPHIGUS VULGARIS
     Route: 042
     Dates: start: 2017
  4. METHYLPREDNISOLONE [Suspect]
     Active Substance: METHYLPREDNISOLONE
     Dosage: 50 MG, RECEIVED DURING RITUXIMAB DESENSITISATION
     Route: 042
     Dates: start: 2018
  5. METHYLPREDNISOLONE [Suspect]
     Active Substance: METHYLPREDNISOLONE
     Dosage: 125 MG, RECEIVED DURING OCRELIZUMAB THERAPY
     Route: 042
     Dates: start: 2018
  6. METHOTREXATE [Suspect]
     Active Substance: METHOTREXATE
     Indication: Pemphigus
     Dosage: RECEIVED DURING LOADING DOSE OF RITUXIMAB, 10 MG ONCE IN A WEEK
     Route: 065
     Dates: start: 201606
  7. METHOTREXATE [Suspect]
     Active Substance: METHOTREXATE
     Dosage: RECEIVED ON RELAPSE OF PEMPHIGUS VULGARIS, 15 MG ONCE IN A WEEK
     Route: 065
     Dates: start: 2017
  8. MONTELUKAST [Suspect]
     Active Substance: MONTELUKAST SODIUM
     Indication: Anaphylaxis prophylaxis
     Dosage: 10 MG, RECEIVED ONCE DURING RITUXIMAB DESENSITISATION
     Route: 048
     Dates: start: 2018
  9. AZATHIOPRINE [Suspect]
     Active Substance: AZATHIOPRINE
     Indication: Pemphigus
     Dosage: 150 MILLIGRAM DAILY;
     Route: 065
  10. HUMAN IMMUNOGLOBULIN G [Suspect]
     Active Substance: HUMAN IMMUNOGLOBULIN G
     Indication: Pemphigus
     Dosage: 180 MG ONCE IN A MONTH
     Route: 042
  11. RITUXIMAB [Suspect]
     Active Substance: RITUXIMAB
     Indication: Pemphigus
     Dosage: 1000 MG, RECEIVED LOADING DOSE ON DAY 0
     Route: 041
     Dates: start: 201606
  12. RITUXIMAB [Suspect]
     Active Substance: RITUXIMAB
     Dosage: 1000 MG, RECEIVED LOADING DOSE ON DAY 15
     Route: 041
     Dates: start: 2016
  13. RITUXIMAB [Suspect]
     Active Substance: RITUXIMAB
     Dosage: 1000 MG, RECEIVED ONCE ON RELAPSE OF PEMPHIGUS VULGARIS
     Route: 041
     Dates: start: 2017
  14. RITUXIMAB [Suspect]
     Active Substance: RITUXIMAB
     Dosage: 1000 MG, RECEIVED ONCE DURING DESENSITISATION
     Route: 041
     Dates: start: 2018
  15. DIPHENHYDRAMINE [Suspect]
     Active Substance: DIPHENHYDRAMINE
     Indication: Pemphigus
     Dosage: 25 MG, RECEIVED DURING LOADING DOSE OF RITUXIMAB
     Route: 042
     Dates: start: 201606
  16. DIPHENHYDRAMINE [Suspect]
     Active Substance: DIPHENHYDRAMINE
     Dosage: 50 MG, RECEIVED DURING RELAPSE OF PEMPHIGUS VULGARIS
     Route: 042
     Dates: start: 2017
  17. DIPHENHYDRAMINE [Suspect]
     Active Substance: DIPHENHYDRAMINE
     Dosage: 50 MG, RECEIVED DURING RITUXIMAB DESENSITISATION
     Route: 042
     Dates: start: 2018
  18. DIPHENHYDRAMINE [Suspect]
     Active Substance: DIPHENHYDRAMINE
     Dosage: 50 MG, RECEIVED DURING OCRELIZUMAB THERAPY
     Route: 042
     Dates: start: 2018
  19. ACETAMINOPHEN [Suspect]
     Active Substance: ACETAMINOPHEN
     Indication: Anaphylaxis prophylaxis
     Dosage: 600 MG, RECEIVED ON RELAPSE OF PEMPHIGUS VULGARIS
     Route: 048
     Dates: start: 2017
  20. ACETAMINOPHEN [Suspect]
     Active Substance: ACETAMINOPHEN
     Dosage: 650 MG, RECEIVED DURING OCRELIZUMAB THERAPY
     Route: 048
     Dates: start: 2018
  21. ASPIRIN [Suspect]
     Active Substance: ASPIRIN
     Indication: Anaphylaxis prophylaxis
     Dosage: 325 MG, RECEIVED ONCE DURING RITUXIMAB DESENSITISATION
     Route: 048
     Dates: start: 2018
  22. FAMOTIDINE [Suspect]
     Active Substance: FAMOTIDINE
     Indication: Anaphylaxis prophylaxis
     Dosage: 20 MG, RECEIVED ONCE DURING RITUXIMAB DESENSITISATION
     Route: 042
     Dates: start: 2018
  23. OCREVUS [Suspect]
     Active Substance: OCRELIZUMAB
     Indication: Pemphigus
     Dosage: 300 MG, RECEIVED AS LOADING DOSE ON DAY 0
     Route: 041
     Dates: start: 2018
  24. OCREVUS [Suspect]
     Active Substance: OCRELIZUMAB
     Dosage: 300 MG, RECEIVED AS LOADING DOSE ON DAY 15
     Route: 041
     Dates: start: 2018
  25. OCREVUS [Suspect]
     Active Substance: OCRELIZUMAB
     Dosage: 300 MG, RECEIVED AS LOADING DOSE AT 6 MONTHS
     Route: 041
     Dates: start: 2019
  26. OCREVUS [Suspect]
     Active Substance: OCRELIZUMAB
     Dosage: 600 MG, RECEIVED AS MAINTENANCE DOSE AT 12, 18 AND 24 MONTHS
     Route: 041
  27. PREDNISONE [Concomitant]
     Active Substance: PREDNISONE
     Indication: Pemphigus
     Dosage: 100 MILLIGRAM DAILY; RECEIVED DURING LOADING DOSE OF RITUXIMAB
     Route: 065
     Dates: start: 201606
  28. PREDNISONE [Concomitant]
     Active Substance: PREDNISONE
     Dosage: 40 MILLIGRAM DAILY; RECEIVED DURING LOADING DOSE OF RITUXIMAB
     Route: 065
     Dates: start: 2016
  29. PREDNISONE [Concomitant]
     Active Substance: PREDNISONE
     Dosage: 20 MILLIGRAM DAILY; RECEIVED DURING RELAPSE OF PEMPHIGUS VULGARIS
     Route: 065
     Dates: start: 2017
  30. PREDNISONE [Concomitant]
     Active Substance: PREDNISONE
     Dosage: 20 MILLIGRAM DAILY; RECEIVED ONCE DURING RITUXIMAB DESENSITISATION
     Route: 065
     Dates: start: 2018
  31. PREDNISONE [Concomitant]
     Active Substance: PREDNISONE
     Dosage: 20 MILLIGRAM DAILY; RECEIVED DURING OCRELIZUMAB THERAPY
     Route: 065
     Dates: start: 2018
  32. PREDNISONE [Concomitant]
     Active Substance: PREDNISONE
     Dosage: 10 MILLIGRAM DAILY; RECEIVED DURING OCRELIZUMAB THERAPY
     Route: 065
     Dates: start: 2019
  33. DAPSONE [Concomitant]
     Active Substance: DAPSONE
     Indication: Pemphigus
     Dosage: 25 MILLIGRAM DAILY; RECEIVED DURING LOADING DOSE OF RITUXIMAB
     Route: 065
     Dates: start: 201606
  34. DAPSONE [Concomitant]
     Active Substance: DAPSONE
     Dosage: 75 MILLIGRAM DAILY; RECEIVED ON RELAPSE OF PEMPHIGUS VULGARIS
     Route: 065
     Dates: start: 2017
  35. CYCLOPHOSPHAMIDE [Concomitant]
     Active Substance: CYCLOPHOSPHAMIDE
     Indication: Pemphigus
     Dosage: 150 MILLIGRAM DAILY;
     Route: 065
     Dates: start: 2018

REACTIONS (5)
  - Anaphylactic reaction [Unknown]
  - Nausea [Unknown]
  - Fatigue [Unknown]
  - Drug ineffective [Unknown]
  - Off label use [Unknown]
